FAERS Safety Report 4343239-6 (Version None)
Quarter: 2004Q2

REPORT INFORMATION
  Report Type: 
  Country: None (occurrence: None)
  Receive Date: 20040421
  Receipt Date: 20040407
  Transmission Date: 20050107
  Serious: Yes (Hospitalization)
  Sender: FDA-Public Use
  Company Number: SG-MERCK-0404SGP00004

PATIENT
  Age: 4 Year
  Sex: Male
  Weight: 16 kg

DRUGS (3)
  1. ALBUTEROL SULFATE [Concomitant]
     Route: 065
     Dates: start: 20010101
  2. BUDESONIDE [Concomitant]
     Route: 055
     Dates: start: 20030201
  3. SINGULAIR [Suspect]
     Indication: ASTHMA
     Route: 048
     Dates: start: 20040201, end: 20040401

REACTIONS (1)
  - ILEUS [None]
